FAERS Safety Report 21187736 (Version 1)
Quarter: 2022Q3

REPORT INFORMATION
  Report Type: Spontaneous
  Country: US (occurrence: US)
  Receive Date: 20220809
  Receipt Date: 20220809
  Transmission Date: 20221027
  Serious: Yes (Other)
  Sender: FDA-Public Use
  Company Number: US-BEH-2022148085

PATIENT
  Sex: Male

DRUGS (6)
  1. IDELVION [Suspect]
     Active Substance: COAGULATION FACTOR IX RECOMBINANT HUMAN
     Indication: Factor IX deficiency
     Dosage: 3918 INTERNATIONAL UNIT, QW
     Route: 042
     Dates: start: 20220526
  2. IDELVION [Suspect]
     Active Substance: COAGULATION FACTOR IX RECOMBINANT HUMAN
     Indication: Factor IX deficiency
     Dosage: 3918 INTERNATIONAL UNIT, QW
     Route: 042
     Dates: start: 20220526
  3. IDELVION [Suspect]
     Active Substance: COAGULATION FACTOR IX RECOMBINANT HUMAN
     Dosage: 1032 INTERNATIONAL UNIT, QW
     Route: 042
     Dates: start: 20220526
  4. IDELVION [Suspect]
     Active Substance: COAGULATION FACTOR IX RECOMBINANT HUMAN
     Dosage: 1032 INTERNATIONAL UNIT, QW
     Route: 042
     Dates: start: 20220526
  5. IDELVION [Suspect]
     Active Substance: COAGULATION FACTOR IX RECOMBINANT HUMAN
     Dosage: 2011 INTERNATIONAL UNIT, QW
     Route: 042
     Dates: start: 20220526
  6. IDELVION [Suspect]
     Active Substance: COAGULATION FACTOR IX RECOMBINANT HUMAN
     Dosage: 2011 INTERNATIONAL UNIT, QW
     Route: 042
     Dates: start: 20220526

REACTIONS (1)
  - Haemorrhage [Recovered/Resolved]
